FAERS Safety Report 15812925 (Version 1)
Quarter: 2019Q1

REPORT INFORMATION
  Report Type: Spontaneous
  Country: JP (occurrence: JP)
  Receive Date: 20190111
  Receipt Date: 20190111
  Transmission Date: 20190417
  Serious: Yes (Other)
  Sender: FDA-Public Use
  Company Number: JP-BRISTOL-MYERS SQUIBB COMPANY-BMS-2019-000918

PATIENT

DRUGS (1)
  1. KENACORT-A [Suspect]
     Active Substance: TRIAMCINOLONE
     Indication: RHEUMATOID ARTHRITIS
     Dosage: UNK
     Route: 014
     Dates: start: 201608, end: 201707

REACTIONS (1)
  - Femur fracture [Unknown]
